FAERS Safety Report 19485483 (Version 8)
Quarter: 2021Q4

REPORT INFORMATION
  Report Type: Other
  Country: GB (occurrence: GB)
  Receive Date: 20210702
  Receipt Date: 20211203
  Transmission Date: 20220303
  Serious: Yes (Death, Other)
  Sender: FDA-Public Use
  Company Number: GB-CELLTRION INC.-2019GB023124

PATIENT

DRUGS (81)
  1. TRASTUZUMAB [Suspect]
     Active Substance: TRASTUZUMAB
     Indication: HER2 positive breast cancer
     Dosage: 525 MILLIGRAM (LOADING DOSE)(DOSAGE FORM: 293)
     Route: 042
     Dates: start: 20170524, end: 20170524
  2. TRASTUZUMAB [Suspect]
     Active Substance: TRASTUZUMAB
     Indication: Breast cancer
     Dosage: 400 MILLIGRAM, EVERY 3 WEEKS (DOSE FORM: 293)
     Route: 042
     Dates: start: 20170614, end: 20180425
  3. TRASTUZUMAB [Suspect]
     Active Substance: TRASTUZUMAB
     Dosage: DISCONTINUED DUE TO DISEASE PROGRESSION AND FURTHER ANTICANCER TREATMENT. 378 MILLIGRAM, Q3W
     Route: 042
     Dates: start: 20180516, end: 20190327
  4. TRASTUZUMAB [Suspect]
     Active Substance: TRASTUZUMAB
     Dosage: 378 MILLIGRAM, EVERY 3 WEEKS  (DOSE FORM: 356, CUMULATIVE DOSE: 6912.0 MG) (DOSE FORM: 293)
     Route: 042
     Dates: start: 20180516, end: 20190327
  5. TRASTUZUMAB [Suspect]
     Active Substance: TRASTUZUMAB
     Dosage: 378 MILLIGRAM, EVERY 3 WEEKS
     Route: 042
     Dates: start: 20180516, end: 20190327
  6. TRASTUZUMAB [Suspect]
     Active Substance: TRASTUZUMAB
     Dosage: 400 MILLIGRAM, EVERY 3 WEEKS
     Route: 042
     Dates: start: 20170614, end: 20180425
  7. TRASTUZUMAB [Suspect]
     Active Substance: TRASTUZUMAB
     Dosage: 525 MILLIGRAM (LOADING DOSE)
     Route: 042
     Dates: start: 20170524, end: 20170524
  8. ABRAXANE [Suspect]
     Active Substance: PACLITAXEL
     Indication: HER2 positive breast cancer
     Dosage: 375 MG, EVERY 3 WEEKS
     Route: 042
     Dates: start: 20170705, end: 20170726
  9. ABRAXANE [Suspect]
     Active Substance: PACLITAXEL
     Dosage: 450 MG, EVERY 3 WEEKS
     Route: 042
     Dates: start: 20170614, end: 20170614
  10. ABRAXANE [Suspect]
     Active Substance: PACLITAXEL
     Dosage: 300 MG, EVERY 3 WEEKS, DISCONTINUED AS PLANNED NUMBER OF CYCLES WERE COMPLETED
     Route: 042
     Dates: start: 20170816, end: 20170906
  11. CAPECITABINE [Suspect]
     Active Substance: CAPECITABINE
     Indication: HER2 positive breast cancer
     Dosage: 1300 MG
     Route: 048
     Dates: start: 20201020
  12. CAPECITABINE [Suspect]
     Active Substance: CAPECITABINE
     Indication: Breast cancer
     Dosage: 1300 MG
     Route: 048
     Dates: start: 20201020
  13. DOCETAXEL [Suspect]
     Active Substance: DOCETAXEL
     Indication: HER2 positive breast cancer
     Dosage: 130 MILLIGRAM, Q3WK
     Route: 042
     Dates: start: 20170525, end: 20170525
  14. DOCETAXEL [Suspect]
     Active Substance: DOCETAXEL
     Indication: Breast cancer
     Dosage: 130 MILLIGRAM, EVERY 3 WEEKS
     Route: 042
     Dates: start: 20170525, end: 20170525
  15. PACLITAXEL [Suspect]
     Active Substance: PACLITAXEL
     Indication: HER2 positive breast cancer
     Dosage: 450 MILLIGRAM, EVERY 3 WEEKS
     Route: 042
     Dates: start: 20170614, end: 20170614
  16. PACLITAXEL [Suspect]
     Active Substance: PACLITAXEL
     Indication: Breast cancer
     Dosage: 375 MILLIGRAM,Q3WK  (CUMULATIVE DOSE: 12482.143 MG)
     Route: 042
     Dates: start: 20170705, end: 20170726
  17. PACLITAXEL [Suspect]
     Active Substance: PACLITAXEL
     Dosage: 300 MILLIGRAM Q3WK (CUMULATIVE DOSE: 9385.714 MG)
     Route: 042
     Dates: start: 20170816, end: 20170906
  18. PACLITAXEL [Suspect]
     Active Substance: PACLITAXEL
     Dosage: 375 MILLIGRAM, EVERY 3 WEEKS
     Route: 042
     Dates: start: 20170705, end: 20170726
  19. PACLITAXEL [Suspect]
     Active Substance: PACLITAXEL
     Dosage: 450 MILLIGRAM, EVERY 3 WEEKS
     Route: 042
     Dates: start: 20170614, end: 20170614
  20. PACLITAXEL [Suspect]
     Active Substance: PACLITAXEL
     Dosage: 300 MILLIGRAM EVERY 3 WEEKS
     Route: 042
     Dates: start: 20170816, end: 20170906
  21. PERTUZUMAB [Suspect]
     Active Substance: PERTUZUMAB
     Indication: HER2 positive breast cancer
     Dosage: 840 MG. 1 TOTAL, LOADING DOSE (DOSAGE FORM: 230)
     Route: 042
     Dates: start: 20170524, end: 20170524
  22. PERTUZUMAB [Suspect]
     Active Substance: PERTUZUMAB
     Indication: Breast cancer
     Dosage: 420 MILLIGRAM, EVERY 3 WEEKS (DOSAGE FORM: 230) MAINTENANCE DOSE. DISCONTINUED DUE TO DISEASE PROGRE
     Route: 042
     Dates: start: 20170614, end: 20190327
  23. PERTUZUMAB [Suspect]
     Active Substance: PERTUZUMAB
     Dosage: 840 MG, LOADING DOSE
     Route: 042
     Dates: start: 20170524, end: 20170524
  24. TAXOTERE [Suspect]
     Active Substance: DOCETAXEL
     Indication: HER2 positive breast cancer
     Dosage: 130 MG, 3/WEEK
     Route: 042
     Dates: start: 20170525, end: 20170525
  25. ADO-TRASTUZUMAB EMTANSINE [Suspect]
     Active Substance: ADO-TRASTUZUMAB EMTANSINE
     Indication: HER2 positive breast cancer
     Dosage: 240 MILLIGRAM, EVERY 3 WEEKS (DOSE FORM: 230) (CUMULATIVE DOSE: 434.2857 MG)
     Route: 042
     Dates: start: 20190427, end: 20190606
  26. ADO-TRASTUZUMAB EMTANSINE [Suspect]
     Active Substance: ADO-TRASTUZUMAB EMTANSINE
     Indication: Breast cancer
     Dosage: 200 MILLIGRAM,Q3WK(DOSE FORM: 230) (CUMULATIVE DOSE: 219.04762 MG)
     Route: 042
     Dates: start: 20190627, end: 20190718
  27. ADO-TRASTUZUMAB EMTANSINE [Suspect]
     Active Substance: ADO-TRASTUZUMAB EMTANSINE
     Dosage: 160 MG, EVERY 3 WEEKS (DOSE FORM: 230) (CUMULATIVE DOSE: 655.2381 MG) (DOSAGE FORM: UNKNOWN)
     Route: 042
     Dates: start: 20190829, end: 20200326
  28. ADO-TRASTUZUMAB EMTANSINE [Suspect]
     Active Substance: ADO-TRASTUZUMAB EMTANSINE
     Dosage: 200 MILLIGRAM, EVERY 3 WEEKS
     Route: 042
     Dates: start: 20190627, end: 20190718
  29. AMITRIPTYLINE HYDROCHLORIDE [Concomitant]
     Active Substance: AMITRIPTYLINE HYDROCHLORIDE
     Indication: Depressed mood
     Dosage: 5 MILLIGRAM, 1X/DAY
     Route: 048
     Dates: start: 20190827
  30. AMOXICILLIN [Concomitant]
     Active Substance: AMOXICILLIN
     Indication: Abdominal pain
     Dosage: UNK
  31. AMOXICILLIN [Concomitant]
     Active Substance: AMOXICILLIN
     Indication: Pyrexia
     Dosage: 625 MILLIGRAM, TID
     Route: 048
     Dates: start: 20201211, end: 20201216
  32. AMOXICILLIN [Concomitant]
     Active Substance: AMOXICILLIN
     Dosage: 625 MG, 0.33 PER DAY
     Route: 048
     Dates: start: 20201211, end: 20201216
  33. APIXABAN [Concomitant]
     Active Substance: APIXABAN
     Indication: Product used for unknown indication
     Dosage: 2.5 MG, 0.5 PER DAY
     Route: 048
     Dates: start: 20190819, end: 20190917
  34. APIXABAN [Concomitant]
     Active Substance: APIXABAN
     Dosage: 2.5 MG, 2X/DAY
     Route: 048
     Dates: start: 20190819, end: 20190917
  35. ARTIFICIAL SALIVA [Concomitant]
     Indication: Product used for unknown indication
     Dosage: UNK, EVERY 0.25 DAY
     Route: 060
     Dates: start: 20170526
  36. CALCIUM\CHOLECALCIFEROL [Concomitant]
     Active Substance: CALCIUM\CHOLECALCIFEROL
     Indication: Product used for unknown indication
     Dosage: UNK, 0.33 DAY
     Route: 048
     Dates: start: 20170525
  37. CALCIUM\CHOLECALCIFEROL [Concomitant]
     Active Substance: CALCIUM\CHOLECALCIFEROL
     Dosage: UNK UNK, 3X/DAY
     Route: 048
     Dates: start: 20170525
  38. CALCIUM\CHOLECALCIFEROL [Concomitant]
     Active Substance: CALCIUM\CHOLECALCIFEROL
     Dosage: UNK, Q8H
     Route: 048
     Dates: start: 20170525
  39. CALCIUM\CHOLECALCIFEROL [Concomitant]
     Active Substance: CALCIUM\CHOLECALCIFEROL
     Dosage: UNK, DAILY
     Route: 048
     Dates: start: 20170525
  40. CARBOXYMETHYLCELLULOSE SODIUM [Concomitant]
     Active Substance: CARBOXYMETHYLCELLULOSE SODIUM
     Dosage: UNK, 4X/DAY
     Route: 060
     Dates: start: 20170526
  41. CARBOXYMETHYLCELLULOSE SODIUM [Concomitant]
     Active Substance: CARBOXYMETHYLCELLULOSE SODIUM
     Dosage: UNK UNK, Q6H
     Route: 060
     Dates: start: 20170526
  42. CARBOXYMETHYLCELLULOSE SODIUM [Concomitant]
     Active Substance: CARBOXYMETHYLCELLULOSE SODIUM
     Dosage: UNK, QID
     Route: 060
     Dates: start: 20170526
  43. CETIRIZINE [Concomitant]
     Active Substance: CETIRIZINE HYDROCHLORIDE
     Indication: Urticaria papular
     Dosage: 10 MILLIGRAM, QD
     Route: 048
     Dates: start: 20190313
  44. CHLORHEXIDINE GLUCONATE [Concomitant]
     Active Substance: CHLORHEXIDINE GLUCONATE
     Indication: Product used for unknown indication
     Dosage: 10 MILLILITER, Q6H
     Route: 061
  45. CHLORHEXIDINE GLUCONATE [Concomitant]
     Active Substance: CHLORHEXIDINE GLUCONATE
     Dosage: 40 ML, DAILY; 10 MILLILITER, QID
     Route: 061
     Dates: start: 20170525
  46. CHLORHEXIDINE GLUCONATE [Concomitant]
     Active Substance: CHLORHEXIDINE GLUCONATE
     Dosage: 10 MILLILITER, Q6H
     Route: 061
     Dates: start: 20170525
  47. CHLORHEXIDINE GLUCONATE [Concomitant]
     Active Substance: CHLORHEXIDINE GLUCONATE
     Dosage: 10 ML, 0.25 DAY
     Route: 061
     Dates: start: 20170525
  48. CHLORPHENIRAMINE MALEATE [Concomitant]
     Active Substance: CHLORPHENIRAMINE MALEATE
     Indication: Product used for unknown indication
     Dosage: 4 MILLIGRAM, Q6H
     Route: 048
     Dates: start: 20170526
  49. CHLORPHENIRAMINE MALEATE [Concomitant]
     Active Substance: CHLORPHENIRAMINE MALEATE
     Dosage: 4 MILLIGRAM, QID
     Route: 048
     Dates: start: 20170526
  50. CHLORPHENIRAMINE MALEATE [Concomitant]
     Active Substance: CHLORPHENIRAMINE MALEATE
     Dosage: 4 MG, 0.25 DAY
     Route: 048
     Dates: start: 20170526
  51. CHLORPHENIRAMINE MALEATE [Concomitant]
     Active Substance: CHLORPHENIRAMINE MALEATE
     Dosage: 4 MG, 0.25 DAY
     Route: 048
     Dates: start: 20170526
  52. CHLORPHENIRAMINE MALEATE [Concomitant]
     Active Substance: CHLORPHENIRAMINE MALEATE
     Dosage: 4 MILLIGRAM, QID
     Route: 048
     Dates: start: 20170526
  53. CLOBETASOL PROPIONATE [Concomitant]
     Active Substance: CLOBETASOL PROPIONATE
     Indication: Product used for unknown indication
     Dosage: 0.5 DAY
     Route: 061
     Dates: start: 20170210
  54. CLOBETASOL PROPIONATE [Concomitant]
     Active Substance: CLOBETASOL PROPIONATE
     Dosage: UNK, BID
     Route: 061
     Dates: start: 20170210
  55. CLOBETASOL [Concomitant]
     Active Substance: CLOBETASOL
     Indication: Urticaria papular
     Dosage: 0.1 %, DAILY
     Route: 061
     Dates: start: 20170210
  56. DOMPERIDONE [Concomitant]
     Active Substance: DOMPERIDONE
     Indication: Product used for unknown indication
     Dosage: 10 MILLIGRAM, TID
     Route: 048
     Dates: start: 20170523
  57. DOMPERIDONE [Concomitant]
     Active Substance: DOMPERIDONE
     Dosage: 10 MILLIGRAM, THRICE A DAY
     Route: 048
     Dates: start: 20170523
  58. DOMPERIDONE [Concomitant]
     Active Substance: DOMPERIDONE
     Dosage: 10 MG 0.33 DAY
     Route: 048
     Dates: start: 20170523
  59. FUSIDIC ACID [Concomitant]
     Active Substance: FUSIDIC ACID
     Indication: Product used for unknown indication
     Dosage: UNK
     Route: 065
     Dates: start: 201905
  60. CYCLOSPORINE [Concomitant]
     Active Substance: CYCLOSPORINE
     Indication: Blepharitis
     Dosage: UNK
     Route: 047
     Dates: start: 201708
  61. LANSOPRAZOLE [Concomitant]
     Active Substance: LANSOPRAZOLE
     Indication: Product used for unknown indication
     Dosage: 30 MG, EVERY DAY
     Route: 048
     Dates: start: 20190730
  62. LANSOPRAZOLE [Concomitant]
     Active Substance: LANSOPRAZOLE
     Dosage: 30 MG, QD
     Route: 048
     Dates: start: 20190827
  63. LOPERAMIDE [Concomitant]
     Active Substance: LOPERAMIDE
     Indication: Product used for unknown indication
     Dosage: 2 MILLIGRAM AS NECESSARY
     Route: 048
     Dates: start: 20170613
  64. LOPERAMIDE [Concomitant]
     Active Substance: LOPERAMIDE
     Dosage: 2 MG, PRN (AS NEEDED)
     Route: 048
     Dates: start: 20170613
  65. METRONIDAZOLE [Concomitant]
     Active Substance: METRONIDAZOLE
     Dosage: UNK
     Dates: start: 20200909, end: 20200914
  66. METRONIDAZOLE [Concomitant]
     Active Substance: METRONIDAZOLE
     Dosage: 400 MILLIGRAM, QMO
     Route: 048
     Dates: start: 20201116, end: 202011
  67. ACETAMINOPHEN [Concomitant]
     Active Substance: ACETAMINOPHEN
     Indication: Product used for unknown indication
     Dosage: 1 INTERNATIONAL UNIT (IU), AS NECESSARY
     Route: 048
     Dates: start: 20170525
  68. CARBOXYMETHYLCELLULOSE SODIUM\DEVICE\SORBINICATE [Concomitant]
     Active Substance: CARBOXYMETHYLCELLULOSE SODIUM\DEVICE\SORBINICATE
     Dosage: UNK, 0.25 DAY
     Route: 060
     Dates: start: 20170526
  69. SANDO K [Concomitant]
     Indication: Product used for unknown indication
     Dosage: UNK,UNK DAILY
     Route: 048
     Dates: start: 20170525
  70. SANDO K [Concomitant]
     Dosage: UNK, 0.5 DAY
     Route: 048
     Dates: start: 20170525
  71. SANDO K [Concomitant]
     Dosage: UNK, BID
     Dates: start: 20170525
  72. TINZAPARIN [Concomitant]
     Active Substance: TINZAPARIN
     Indication: Product used for unknown indication
     Dosage: 4500 INTERNATIONAL UNIT, QD
     Route: 058
     Dates: start: 20190918
  73. TINZAPARIN [Concomitant]
     Active Substance: TINZAPARIN
     Dosage: 1200 INTERNATIONAL UNIT, QD
     Route: 058
     Dates: start: 20170713
  74. TINZAPARIN [Concomitant]
     Active Substance: TINZAPARIN
     Dosage: 4500 INTERNATIONAL UNIT, QD
     Route: 058
     Dates: start: 20190916
  75. TINZAPARIN [Concomitant]
     Active Substance: TINZAPARIN
     Dosage: 12000 UNIT
     Route: 058
     Dates: start: 20170713
  76. TRANEXAMIC ACID [Concomitant]
     Active Substance: TRANEXAMIC ACID
     Indication: Product used for unknown indication
     Dosage: UNK
     Route: 065
     Dates: start: 20190722
  77. VANCOMYCIN [Concomitant]
     Active Substance: VANCOMYCIN
     Dosage: 125 MILLIGRAM, QID
     Route: 048
     Dates: start: 20201030
  78. VANCOMYCIN [Concomitant]
     Active Substance: VANCOMYCIN
     Dosage: 500 MILLIGRAM, QID
     Route: 048
     Dates: start: 20201104, end: 20201113
  79. VANCOMYCIN [Concomitant]
     Active Substance: VANCOMYCIN
     Dosage: 125 MG, 0.25 PER DAY
     Route: 048
     Dates: start: 20201030
  80. VANCOMYCIN [Concomitant]
     Active Substance: VANCOMYCIN
     Dosage: 500 MG, 0.25 PER DAY
     Route: 048
     Dates: start: 20201104, end: 20201113
  81. ZOLEDRONIC ACID [Concomitant]
     Active Substance: ZOLEDRONIC ACID
     Indication: Prophylaxis
     Dosage: 4 MILLIGRAM (EVERY 3-4 WEEKS)
     Route: 042
     Dates: start: 20170525

REACTIONS (7)
  - Neoplasm progression [Fatal]
  - Tenosynovitis [Fatal]
  - Device related infection [Fatal]
  - Biliary sepsis [Fatal]
  - Off label use [Fatal]
  - Sinus tachycardia [Unknown]
  - Epistaxis [Not Recovered/Not Resolved]

NARRATIVE: CASE EVENT DATE: 20190401
